FAERS Safety Report 17806598 (Version 1)
Quarter: 2020Q2

REPORT INFORMATION
  Report Type: Spontaneous
  Country: US (occurrence: US)
  Receive Date: 20200520
  Receipt Date: 20200520
  Transmission Date: 20200714
  Serious: No
  Sender: FDA-Public Use
  Company Number: US-ELI_LILLY_AND_COMPANY-US202005006799

PATIENT
  Sex: Female

DRUGS (4)
  1. HUMALOG [Suspect]
     Active Substance: INSULIN LISPRO
     Indication: TYPE 2 DIABETES MELLITUS
     Dosage: 13 U, UNKNOWN (BEFORE EACH MEAL)
     Route: 065
     Dates: start: 201704
  2. LANTUS [Concomitant]
     Active Substance: INSULIN GLARGINE
     Indication: TYPE 2 DIABETES MELLITUS
     Dosage: 32 U, EACH EVENING (BEFORE BED)
     Dates: start: 201704
  3. HUMALOG [Suspect]
     Active Substance: INSULIN LISPRO
     Indication: TYPE 2 DIABETES MELLITUS
     Dosage: 13 U, UNKNOWN (BEFORE EACH MEAL)
     Route: 065
     Dates: start: 201704
  4. HUMALOG [Suspect]
     Active Substance: INSULIN LISPRO
     Dosage: 13 U, UNKNOWN (BEFORE EACH MEAL)
     Route: 065

REACTIONS (2)
  - Visual impairment [Unknown]
  - Depression [Recovered/Resolved]
